FAERS Safety Report 18815690 (Version 1)
Quarter: 2021Q1

REPORT INFORMATION
  Report Type: Spontaneous
  Country: GB (occurrence: GB)
  Receive Date: 20210131
  Receipt Date: 20210131
  Transmission Date: 20210419
  Serious: Yes (Life-Threatening, Other)
  Sender: FDA-Public Use
  Company Number: None

PATIENT
  Age: 25 Year
  Sex: Male
  Weight: 61 kg

DRUGS (1)
  1. PROPECIA [Suspect]
     Active Substance: FINASTERIDE
     Indication: ALOPECIA
     Dosage: ?          QUANTITY:1 TABLET(S);?
     Route: 048
     Dates: start: 20170919, end: 20181127

REACTIONS (10)
  - Loss of libido [None]
  - Musculoskeletal disorder [None]
  - Semen volume decreased [None]
  - Alanine aminotransferase increased [None]
  - Decreased appetite [None]
  - Blood prolactin increased [None]
  - Anxiety [None]
  - Erectile dysfunction [None]
  - Testicular atrophy [None]
  - Hypertrichosis [None]

NARRATIVE: CASE EVENT DATE: 20200106
